FAERS Safety Report 6046979-6 (Version None)
Quarter: 2009Q1

REPORT INFORMATION
  Report Type: 
  Country: None (occurrence: None)
  Receive Date: 20090109
  Receipt Date: 20081125
  Transmission Date: 20090719
  Serious: Yes (Life-Threatening, Other)
  Sender: FDA-Public Use
  Company Number: THYM-1000878

PATIENT

DRUGS (1)
  1. THYMOGLOBULIN [Suspect]
     Indication: TRANSPLANT
     Dosage: 1 MG/KG, INTRAVENOUS
     Route: 042

REACTIONS (3)
  - HEPATIC NECROSIS [None]
  - HYPOTENSION [None]
  - RENAL TUBULAR NECROSIS [None]
